FAERS Safety Report 10539762 (Version 4)
Quarter: 2015Q1

REPORT INFORMATION
  Report Type: Report from Study
  Country: US (occurrence: US)
  Receive Date: 20141024
  Receipt Date: 20150210
  Transmission Date: 20150720
  Serious: No
  Sender: FDA-Public Use
  Company Number: US-AMGEN-USASL2014080803

PATIENT
  Age: 74 Year
  Sex: Female

DRUGS (1)
  1. ENBREL [Suspect]
     Active Substance: ETANERCEPT
     Indication: RHEUMATOID ARTHRITIS
     Dosage: 50 MG, QWK
     Route: 065
     Dates: start: 20140429

REACTIONS (3)
  - Injection site haemorrhage [Recovered/Resolved]
  - Treatment failure [Unknown]
  - Hand deformity [Not Recovered/Not Resolved]

NARRATIVE: CASE EVENT DATE: 2014
